FAERS Safety Report 8640502 (Version 4)
Quarter: 2013Q1

REPORT INFORMATION
  Report Type: Spontaneous
  Country: US (occurrence: US)
  Receive Date: 20120628
  Receipt Date: 20130320
  Transmission Date: 20140127
  Serious: Yes (Other)
  Sender: FDA-Public Use
  Company Number: US-US-EMD SERONO, INC.-7142604

PATIENT
  Sex: Male

DRUGS (5)
  1. REBIF [Suspect]
     Indication: MULTIPLE SCLEROSIS
     Route: 058
     Dates: start: 20120320, end: 201212
  2. REBIF [Suspect]
     Route: 058
     Dates: start: 201212
  3. TEGRETOL [Concomitant]
     Indication: TRIGEMINAL NEURALGIA
     Dates: start: 2000
  4. TEGRETOL [Concomitant]
  5. LYRICA [Concomitant]
     Indication: TRIGEMINAL NEURALGIA

REACTIONS (6)
  - Trigeminal neuralgia [Recovering/Resolving]
  - Multiple sclerosis relapse [Unknown]
  - Hypoaesthesia [Not Recovered/Not Resolved]
  - Injection site erythema [Unknown]
  - Injection site discomfort [Not Recovered/Not Resolved]
  - Injection site haemorrhage [Not Recovered/Not Resolved]
